FAERS Safety Report 8025457 (Version 2)
Quarter: 2014Q2

REPORT INFORMATION
  Report Type: Report from Study
  Country: US (occurrence: US)
  Receive Date: 20110707
  Receipt Date: 20140411
  Transmission Date: 20141212
  Serious: Yes (Disabling, Other)
  Sender: FDA-Public Use
  Company Number: PHHO2007US18614

PATIENT
  Age: 42 Year
  Sex: Female
  Weight: 57 kg

DRUGS (5)
  1. GILENYA [Suspect]
     Indication: MULTIPLE SCLEROSIS
     Dosage: 0.5 MG, QD
     Route: 048
     Dates: start: 20070716, end: 20071105
  2. SYNTHROID [Concomitant]
  3. ATIVAN [Concomitant]
  4. PROZAC [Concomitant]
  5. MURINE [Concomitant]

REACTIONS (7)
  - Macular hole [Recovered/Resolved with Sequelae]
  - Macular oedema [Recovered/Resolved with Sequelae]
  - Optic neuritis [Recovered/Resolved with Sequelae]
  - Macular fibrosis [Recovered/Resolved with Sequelae]
  - Retinal cyst [Recovered/Resolved with Sequelae]
  - Cyst rupture [Recovered/Resolved with Sequelae]
  - Vision blurred [Recovered/Resolved with Sequelae]
